FAERS Safety Report 13879524 (Version 1)
Quarter: 2017Q3

REPORT INFORMATION
  Report Type: Spontaneous
  Country: CA (occurrence: CA)
  Receive Date: 20170817
  Receipt Date: 20170817
  Transmission Date: 20171127
  Serious: Yes (Other)
  Sender: FDA-Public Use
  Company Number: CA-TEVA-796221ACC

PATIENT
  Age: 6 Year
  Sex: Male
  Weight: 16 kg

DRUGS (8)
  1. CYTARABINE INJECTION [Concomitant]
     Active Substance: CYTARABINE
  2. METHOTREXATE (MANUFACTURER UNKNOWN) [Concomitant]
     Active Substance: METHOTREXATE
  3. VINCRISTINE SULFATE INJECTION USP [Concomitant]
     Active Substance: VINCRISTINE SULFATE
  4. HYDROCORTISONE SODIUM SUCCINATE INJ 1GM/VIAL [Concomitant]
  5. L-ASPARAGINASE [Concomitant]
     Active Substance: ASPARAGINASE
  6. MERCAPTOPURINE. [Concomitant]
     Active Substance: MERCAPTOPURINE
  7. DEXAMETHASONE. [Suspect]
     Active Substance: DEXAMETHASONE
     Indication: ACUTE LYMPHOCYTIC LEUKAEMIA
     Route: 048
  8. DOXORUBICIN HYDROCHLORIDE INJECTION [Concomitant]
     Active Substance: DOXORUBICIN HYDROCHLORIDE

REACTIONS (4)
  - Obsessive thoughts [Recovering/Resolving]
  - Aggression [Recovering/Resolving]
  - Insomnia [Recovering/Resolving]
  - Irritability [Recovering/Resolving]
